FAERS Safety Report 13263636 (Version 1)
Quarter: 2017Q1

REPORT INFORMATION
  Report Type: Spontaneous
  Country: US (occurrence: US)
  Receive Date: 20170222
  Receipt Date: 20170222
  Transmission Date: 20170428
  Serious: Yes (Hospitalization)
  Sender: FDA-Public Use
  Company Number: None

PATIENT
  Age: 75 Year
  Sex: Male

DRUGS (18)
  1. TEMOZOLOMIDE 20 MG CAPSULE TEVA [Suspect]
     Active Substance: TEMOZOLOMIDE
     Indication: BRAIN NEOPLASM MALIGNANT
     Route: 048
     Dates: start: 20170117
  2. AMIODARONE [Concomitant]
     Active Substance: AMIODARONE
  3. DEXAMETHASONE. [Concomitant]
     Active Substance: DEXAMETHASONE
  4. IMDUR [Concomitant]
     Active Substance: ISOSORBIDE MONONITRATE
  5. FINASTERIDE. [Concomitant]
     Active Substance: FINASTERIDE
  6. KEPPRA [Concomitant]
     Active Substance: LEVETIRACETAM
  7. TEMOZOLOMIDE. [Suspect]
     Active Substance: TEMOZOLOMIDE
     Indication: BRAIN NEOPLASM MALIGNANT
     Route: 048
     Dates: start: 20170117
  8. VITAMIN B [Concomitant]
     Active Substance: VITAMIN B
  9. MIDODRINE [Concomitant]
     Active Substance: MIDODRINE
  10. ZINC. [Concomitant]
     Active Substance: ZINC
  11. ASPIRIN. [Concomitant]
     Active Substance: ASPIRIN
  12. CARDIZEM [Concomitant]
     Active Substance: DILTIAZEM HYDROCHLORIDE
  13. CALCIUM [Concomitant]
     Active Substance: CALCIUM
  14. VITAMIN D [Concomitant]
     Active Substance: CHOLECALCIFEROL
  15. OMEPRAZOLE. [Concomitant]
     Active Substance: OMEPRAZOLE
  16. PRADAXA [Concomitant]
     Active Substance: DABIGATRAN ETEXILATE MESYLATE
  17. WARFARIN [Concomitant]
     Active Substance: WARFARIN
  18. PROBIOTIC [Concomitant]
     Active Substance: PROBIOTICS NOS

REACTIONS (1)
  - Thrombosis [None]

NARRATIVE: CASE EVENT DATE: 20170215
